FAERS Safety Report 9196674 (Version 1)
Quarter: 2013Q1

REPORT INFORMATION
  Report Type: Spontaneous
  Country: ZA (occurrence: ZA)
  Receive Date: 20130328
  Receipt Date: 20130328
  Transmission Date: 20140127
  Serious: Yes (Other)
  Sender: FDA-Public Use
  Company Number: ZA-AMGEN-ZAFSP2013020045

PATIENT
  Age: 29 Year
  Sex: Male
  Weight: 80 kg

DRUGS (4)
  1. ARANESP [Suspect]
     Indication: PRODUCT USED FOR UNKNOWN INDICATION
     Dosage: 40 MUG, QWK
     Route: 042
  2. PERINDOPRIL [Concomitant]
     Dosage: 4 MG, QD
     Route: 048
  3. ATENOLOL SANDOZ [Concomitant]
     Dosage: 100 MG, QD
     Route: 048
  4. COSMOFER [Concomitant]
     Dosage: 100 MG, QD

REACTIONS (3)
  - Haemoglobin abnormal [Unknown]
  - Blood iron decreased [Not Recovered/Not Resolved]
  - Drug ineffective [Not Recovered/Not Resolved]
